FAERS Safety Report 8271198-2 (Version None)
Quarter: 2012Q2

REPORT INFORMATION
  Report Type: 
  Country: None (occurrence: None)
  Receive Date: 20120410
  Receipt Date: 20120330
  Transmission Date: 20120825
  Serious: Yes (Other)
  Sender: FDA-Public Use
  Company Number: BR-SANOFI-AVENTIS-2012SA022644

PATIENT
  Age: 91 Year
  Sex: Female

DRUGS (4)
  1. PANTOPRAZOLE [Concomitant]
  2. MIRTAZAPINE [Concomitant]
  3. CENTRUM [Concomitant]
  4. PLAVIX [Suspect]
     Dosage: DOSE:1 UNIT(S)
     Route: 065
     Dates: start: 20110101

REACTIONS (1)
  - EFFUSION [None]
